FAERS Safety Report 9583312 (Version 1)
Quarter: 2013Q4

REPORT INFORMATION
  Report Type: Spontaneous
  Country: US (occurrence: US)
  Receive Date: 20131002
  Receipt Date: 20131002
  Transmission Date: 20140711
  Serious: No
  Sender: FDA-Public Use
  Company Number: US-AMGEN-USASP2013046345

PATIENT
  Age: 70 Year
  Sex: Female
  Weight: 88.89 kg

DRUGS (8)
  1. ENBREL [Suspect]
     Indication: PRODUCT USED FOR UNKNOWN INDICATION
     Dosage: 50 MG, QWK
     Route: 058
  2. PREDNISONE [Concomitant]
     Dosage: 1 MG, UNK
     Route: 048
  3. LIPITOR [Concomitant]
     Dosage: 10 MG, UNK
     Route: 048
  4. DILANTIN                           /00017401/ [Concomitant]
     Dosage: 100 MG, UNK
     Route: 048
  5. SYNTHROID [Concomitant]
     Dosage: 100 MUG, UNK
     Route: 048
  6. METFORMIN [Concomitant]
     Dosage: 500 MG, UNK
     Route: 048
  7. FENOFIBRATE [Concomitant]
     Dosage: 134 MG, UNK
     Route: 048
  8. METHOTREXATE [Concomitant]
     Dosage: 25 MG/ML, UNK

REACTIONS (1)
  - Fatigue [Unknown]
